FAERS Safety Report 16889680 (Version 1)
Quarter: 2019Q4

REPORT INFORMATION
  Report Type: Spontaneous
  Country: CH (occurrence: CH)
  Receive Date: 20191007
  Receipt Date: 20191007
  Transmission Date: 20200122
  Serious: Yes (Other)
  Sender: FDA-Public Use
  Company Number: CH-PFIZER INC-2019427777

PATIENT
  Age: 84 Year
  Sex: Male

DRUGS (12)
  1. HEPARINE [HEPARIN] [Concomitant]
     Active Substance: HEPARIN SODIUM
     Dosage: UNK
     Dates: start: 20190712, end: 20190720
  2. CIRCADIN [Concomitant]
     Active Substance: MELATONIN
     Dosage: UNK
  3. CLYSSIE [Concomitant]
     Dosage: UNK, AS NEEDED
  4. TAZOBAC [Suspect]
     Active Substance: PIPERACILLIN SODIUM\TAZOBACTAM SODIUM
     Indication: EVIDENCE BASED TREATMENT
     Dosage: UNK
     Dates: start: 20190713, end: 20190717
  5. DUODART [Concomitant]
     Active Substance: DUTASTERIDE\TAMSULOSIN
     Dosage: UNK
  6. PREGABALIN. [Concomitant]
     Active Substance: PREGABALIN
     Dosage: UNK
  7. BECOZYME [VITAMIN B COMPLEX] [Concomitant]
     Active Substance: VITAMINS
     Dosage: UNK
  8. PURSANA [Concomitant]
     Active Substance: FIG FRUIT OIL\SORBITOL
     Dosage: UNK
     Dates: start: 20190708, end: 20190820
  9. MOVICOL [Concomitant]
     Active Substance: POLYETHYLENE GLYCOL 3350\POTASSIUM CHLORIDE\SODIUM BICARBONATE\SODIUM CHLORIDE
     Dosage: UNK
  10. BELOC ZOK [Concomitant]
     Active Substance: METOPROLOL SUCCINATE
     Dosage: UNK
     Dates: start: 20190709, end: 20190713
  11. LUVIT D3 [Concomitant]
     Active Substance: CHOLECALCIFEROL
     Dosage: UNK
  12. TRAMAL [Concomitant]
     Active Substance: TRAMADOL
     Dosage: UNK, AS NEEDED

REACTIONS (2)
  - Thrombocytopenia [Recovered/Resolved]
  - Endocarditis Q fever [Unknown]

NARRATIVE: CASE EVENT DATE: 20190714
